FAERS Safety Report 20886103 (Version 1)
Quarter: 2022Q2

REPORT INFORMATION
  Report Type: Spontaneous
  Country: DK (occurrence: DK)
  Receive Date: 20220527
  Receipt Date: 20220527
  Transmission Date: 20220721
  Serious: Yes (Disabling, Other)
  Sender: FDA-Public Use
  Company Number: None

PATIENT
  Age: 70 Year
  Sex: Male
  Weight: 90 kg

DRUGS (8)
  1. FILGRASTIM [Suspect]
     Active Substance: FILGRASTIM
     Indication: Myelodysplastic syndrome
     Dosage: UNK
     Route: 065
     Dates: start: 201209, end: 2015
  2. NEUPOGEN [Suspect]
     Active Substance: FILGRASTIM
     Indication: Myelodysplastic syndrome
     Dosage: 1 DOSAGE FORM, QW
     Route: 065
     Dates: start: 201108, end: 20150216
  3. FILGRASTIM [Suspect]
     Active Substance: FILGRASTIM
     Indication: Myelodysplastic syndrome
     Dosage: 60000000 IU, QW (30 MIO IE/ 0.5 ML)
     Route: 058
     Dates: start: 2015, end: 20170830
  4. METOPROLOL SUCCINATE [Concomitant]
     Active Substance: METOPROLOL SUCCINATE
     Indication: Heart rate irregular
     Dosage: 100 MG, QD
     Route: 048
     Dates: start: 20150218
  5. PINEX [Concomitant]
     Indication: Pain
     Dosage: UNK ( 1-2 TABLETS. MAX 3-4 TIMES A DAY)
     Route: 048
  6. WARFARIN SODIUM [Concomitant]
     Active Substance: WARFARIN SODIUM
     Indication: Thrombosis prophylaxis
     Dosage: 5 MG, QD
     Route: 048
     Dates: start: 20150526
  7. COZAAR [Concomitant]
     Active Substance: LOSARTAN POTASSIUM
     Indication: Hypertension
     Dosage: 25 MG, QD
     Route: 048
  8. VITAMIN D [Concomitant]
     Active Substance: VITAMIN D NOS
     Indication: Vitamin supplementation
     Dosage: 1 DOSAGE FORM, QD
     Route: 048
     Dates: start: 20161128

REACTIONS (5)
  - Hypersensitivity pneumonitis [Recovered/Resolved]
  - Haemoptysis [Recovering/Resolving]
  - Dyspnoea [Recovering/Resolving]
  - Cough [Recovering/Resolving]
  - Dermatitis [Recovered/Resolved]

NARRATIVE: CASE EVENT DATE: 20130401
